FAERS Safety Report 5107087-1 (Version None)
Quarter: 2006Q3

REPORT INFORMATION
  Report Type: 
  Country: None (occurrence: None)
  Receive Date: 20060913
  Receipt Date: 20060829
  Transmission Date: 20061208
  Serious: Yes (Hospitalization)
  Sender: FDA-Public Use
  Company Number: 2006RR-03655

PATIENT
  Age: 52 Year
  Sex: Female

DRUGS (1)
  1. ETODOLAC [Suspect]
     Dosage: QD, ORAL
     Route: 048
     Dates: end: 20060330

REACTIONS (2)
  - CEREBRAL ISCHAEMIA [None]
  - CEREBROVASCULAR ACCIDENT [None]
